FAERS Safety Report 7432771-4 (Version None)
Quarter: 2011Q2

REPORT INFORMATION
  Report Type: 
  Country: None (occurrence: None)
  Receive Date: 20110422
  Receipt Date: 20110415
  Transmission Date: 20111010
  Serious: Yes (Death, Hospitalization)
  Sender: FDA-Public Use
  Company Number: B0696975A

PATIENT
  Age: 74 Year
  Sex: Male

DRUGS (1)
  1. AVANDIA [Suspect]
     Route: 048
     Dates: start: 20030101, end: 20060101

REACTIONS (4)
  - MYOCARDIAL INFARCTION [None]
  - CORONARY ARTERY BYPASS [None]
  - CARDIAC FAILURE CONGESTIVE [None]
  - DEATH [None]
